FAERS Safety Report 14286560 (Version 2)
Quarter: 2018Q1

REPORT INFORMATION
  Report Type: Spontaneous
  Country: US (occurrence: US)
  Receive Date: 20171214
  Receipt Date: 20180104
  Transmission Date: 20180509
  Serious: Yes (Hospitalization, Other)
  Sender: FDA-Public Use
  Company Number: US-PFIZER INC-2015227503

PATIENT
  Age: 89 Year
  Sex: Female

DRUGS (2)
  1. FIBERCON [Suspect]
     Active Substance: CALCIUM POLYCARBOPHIL
     Indication: IRRITABLE BOWEL SYNDROME
     Dosage: ONE CAPLET EVERY NIGHT
     Dates: start: 2016
  2. FIBERCON [Suspect]
     Active Substance: CALCIUM POLYCARBOPHIL
     Dosage: UNK

REACTIONS (4)
  - Choking [Unknown]
  - Product size issue [Not Recovered/Not Resolved]
  - Dysphagia [Unknown]
  - Product use complaint [Unknown]

NARRATIVE: CASE EVENT DATE: 201712
